FAERS Safety Report 11863666 (Version 1)
Quarter: 2015Q4

REPORT INFORMATION
  Report Type: Spontaneous
  Country: FR (occurrence: FR)
  Receive Date: 20151223
  Receipt Date: 20151223
  Transmission Date: 20160305
  Serious: Yes (Hospitalization, Other)
  Sender: FDA-Public Use
  Company Number: FR-ELI_LILLY_AND_COMPANY-FR201512003695

PATIENT
  Age: 83 Year
  Sex: Male

DRUGS (2)
  1. CARBOPLATINE MYLAN [Suspect]
     Active Substance: CARBOPLATIN
     Indication: PLEURAL MESOTHELIOMA
     Dosage: 600 MG, CYCLICAL
     Route: 065
     Dates: start: 20150616
  2. ALIMTA [Suspect]
     Active Substance: PEMETREXED DISODIUM
     Indication: PLEURAL MESOTHELIOMA
     Dosage: 500 MG, CYCLICAL
     Route: 042
     Dates: start: 20150616

REACTIONS (4)
  - Pulmonary embolism [Recovered/Resolved]
  - Arrhythmia [Recovered/Resolved]
  - Off label use [Unknown]
  - Aphasia [Unknown]

NARRATIVE: CASE EVENT DATE: 20150616
